FAERS Safety Report 4688472-9 (Version None)
Quarter: 2005Q2

REPORT INFORMATION
  Report Type: 
  Country: None (occurrence: None)
  Receive Date: 20050609
  Receipt Date: 20050331
  Transmission Date: 20051028
  Serious: Yes (Death, Hospitalization, Other)
  Sender: FDA-Public Use
  Company Number: 200511575GDS

PATIENT
  Age: 78 Year
  Sex: Male
  Weight: 63 kg

DRUGS (46)
  1. AVELOX [Suspect]
     Indication: PNEUMONIA
     Dosage: 400 MG, QD, INTRAVENOUS
     Route: 042
     Dates: start: 20050512, end: 20050514
  2. AVELOX [Suspect]
     Indication: PNEUMONIA
     Dosage: 400 MG, QD, ORAL
     Route: 048
     Dates: start: 20050515, end: 20050517
  3. SIPRALEXA [Concomitant]
  4. BICLAR [Concomitant]
  5. QVAR 40 [Concomitant]
  6. ACETYLCYSTEINE [Concomitant]
  7. DIPRIVAN [Concomitant]
  8. LYSOMUCIL [Concomitant]
  9. ACTRAPID [Concomitant]
  10. SYNACTHEN [Concomitant]
  11. SOLU-CORTEF [Concomitant]
  12. ZANTAC [Concomitant]
  13. ULTIVA [Concomitant]
  14. LEVOPHED [Concomitant]
  15. DOBUTREX [Concomitant]
  16. LASIX [Concomitant]
  17. FRAXIPARIN [Concomitant]
  18. TAVANIC [Concomitant]
  19. SOLU-MEDROL [Concomitant]
  20. COMBIVENT [Concomitant]
  21. RYDENE [Concomitant]
  22. AUGMENTIN '125' [Concomitant]
  23. COROTROPE [Concomitant]
  24. MOVICOL [Concomitant]
  25. CATAPRES [Concomitant]
  26. BREVIBLOC [Concomitant]
  27. XANAX [Concomitant]
  28. LANITOP [Concomitant]
  29. OMEPRAZOLE [Concomitant]
  30. GASTROGRAFIN [Concomitant]
  31. MANNITOL [Concomitant]
  32. EUPHYLLINE [Concomitant]
  33. DOBUTAMINE [Concomitant]
  34. ADALAT [Concomitant]
  35. COZAAR [Concomitant]
  36. TENORMIN [Concomitant]
  37. HYTRIN [Concomitant]
  38. STILNOCT [Concomitant]
  39. ALDACTONE [Concomitant]
  40. LYSOX [Concomitant]
  41. SILOMAT [Concomitant]
  42. ACEDICON [Concomitant]
  43. CIPRAMIL [Concomitant]
  44. DOSIDORYL (CHLOROPHYLLIN) [Concomitant]
  45. ANEXATE [Concomitant]
  46. PULMICORT [Concomitant]

REACTIONS (13)
  - ACUTE PULMONARY OEDEMA [None]
  - ACUTE RESPIRATORY DISTRESS SYNDROME [None]
  - ALPHA HAEMOLYTIC STREPTOCOCCAL INFECTION [None]
  - CARDIOMYOPATHY [None]
  - CHILLS [None]
  - HYPERTENSION [None]
  - LEUKOPENIA [None]
  - MYELODYSPLASTIC SYNDROME [None]
  - OXYGEN SATURATION DECREASED [None]
  - PSEUDOMONAS INFECTION [None]
  - PULMONARY EMBOLISM [None]
  - PULMONARY HYPERTENSION [None]
  - STAPHYLOCOCCAL INFECTION [None]
